FAERS Safety Report 16308395 (Version 2)
Quarter: 2019Q2

REPORT INFORMATION
  Report Type: Spontaneous
  Country: US (occurrence: US)
  Receive Date: 20190514
  Receipt Date: 20190610
  Transmission Date: 20190711
  Serious: No
  Sender: FDA-Public Use
  Company Number: US-009507513-1905USA005410

PATIENT
  Age: 59 Year
  Sex: Female

DRUGS (1)
  1. PROVENTIL [Suspect]
     Active Substance: ALBUTEROL
     Indication: CHRONIC OBSTRUCTIVE PULMONARY DISEASE
     Dosage: UNK
     Route: 055

REACTIONS (5)
  - Product dose omission [Unknown]
  - Cough [Not Recovered/Not Resolved]
  - Product use in unapproved indication [Unknown]
  - Product quality issue [Not Recovered/Not Resolved]
  - Wheezing [Not Recovered/Not Resolved]

NARRATIVE: CASE EVENT DATE: 20190508
